FAERS Safety Report 5126890-5 (Version None)
Quarter: 2006Q4

REPORT INFORMATION
  Report Type: 
  Country: None (occurrence: None)
  Receive Date: 20061011
  Receipt Date: 20061011
  Transmission Date: 20070319
  Serious: Yes (Life-Threatening, Hospitalization)
  Sender: FDA-Public Use
  Company Number: None

PATIENT
  Age: 55 Year
  Sex: Male
  Weight: 142 kg

DRUGS (2)
  1. QUININE SULFATE [Suspect]
     Indication: MUSCLE SPASMS
     Dosage: PO
     Route: 048
  2. METHOTREXATE SODIUM [Suspect]
     Indication: PSORIASIS
     Dosage: 15MG QWEEK PO
     Route: 048

REACTIONS (6)
  - BLOOD BLISTER [None]
  - HAEMATOMA [None]
  - IMMUNE SYSTEM DISORDER [None]
  - IMPAIRED HEALING [None]
  - MUSCLE SPASMS [None]
  - THROMBOCYTOPENIA [None]
